FAERS Safety Report 15901262 (Version 1)
Quarter: 2019Q1

REPORT INFORMATION
  Report Type: Spontaneous
  Country: US (occurrence: US)
  Receive Date: 20190201
  Receipt Date: 20190201
  Transmission Date: 20190417
  Serious: Yes (Other)
  Sender: FDA-Public Use
  Company Number: None

PATIENT
  Age: 74 Year
  Sex: Male
  Weight: 84.6 kg

DRUGS (2)
  1. MESALAMINE DELAYED RELEASE 1.2 GRAM [Suspect]
     Active Substance: MESALAMINE
     Indication: COLITIS ULCERATIVE
     Dosage: ?          QUANTITY:4 TABLET(S);?
     Route: 048
     Dates: start: 20181207, end: 20190114
  2. MESALAMINE ASACOL [Suspect]
     Active Substance: MESALAMINE
     Indication: COLITIS ULCERATIVE
     Dosage: ?          QUANTITY:2 TABLET(S);?
     Route: 048
     Dates: start: 20190117, end: 20190119

REACTIONS (11)
  - Secretion discharge [None]
  - Feeling cold [None]
  - Weight decreased [None]
  - Retching [None]
  - Food refusal [None]
  - Balance disorder [None]
  - Muscle atrophy [None]
  - Cough [None]
  - Fatigue [None]
  - Dyspnoea [None]
  - Fall [None]

NARRATIVE: CASE EVENT DATE: 20190104
